FAERS Safety Report 7507027 (Version 12)
Quarter: 2014Q3

REPORT INFORMATION
  Report Type: Spontaneous
  Country: US (occurrence: US)
  Receive Date: 20100729
  Receipt Date: 20140825
  Transmission Date: 20150326
  Serious: Yes (Life-Threatening, Hospitalization, Disabling, Congenital Anomaly, Other)
  Sender: FDA-Public Use
  Company Number: US-PFIZER INC-2010092568

PATIENT
  Sex: Male
  Weight: 4 kg

DRUGS (13)
  1. REGLAN [Concomitant]
     Active Substance: METOCLOPRAMIDE HYDROCHLORIDE
     Dosage: UNK
     Route: 064
  2. RHOGAM [Concomitant]
     Active Substance: HUMAN RHO(D) IMMUNE GLOBULIN
     Dosage: UNK
     Route: 064
  3. VENLAFAXINE HCL [Suspect]
     Active Substance: VENLAFAXINE HYDROCHLORIDE
     Dosage: UNK
     Route: 064
     Dates: start: 200001, end: 200012
  4. PHENERGAN [Concomitant]
     Active Substance: PROMETHAZINE HYDROCHLORIDE
     Indication: NAUSEA
     Dosage: 25 MG, 4X/DAY (EVERY 6 HOURS)
     Route: 064
     Dates: start: 20001115
  5. PHENERGAN [Concomitant]
     Active Substance: PROMETHAZINE HYDROCHLORIDE
     Indication: VOMITING
  6. ZOFRAN [Concomitant]
     Active Substance: ONDANSETRON HYDROCHLORIDE
     Indication: NAUSEA
     Dosage: 8 MG, 2X/DAY
     Route: 064
     Dates: start: 20010103
  7. EFFEXOR [Suspect]
     Active Substance: VENLAFAXINE HYDROCHLORIDE
     Dosage: UNK
     Route: 064
     Dates: start: 200001, end: 200012
  8. MACROBID [Concomitant]
     Active Substance: NITROFURANTOIN\NITROFURANTOIN MONOHYDRATE
     Dosage: UNK
     Route: 064
  9. TYLENOL [Concomitant]
     Active Substance: ACETAMINOPHEN
     Dosage: UNK
     Route: 064
  10. PRENATAL VITAMINS [Concomitant]
     Active Substance: VITAMINS
     Dosage: UNK
     Route: 064
  11. ZOLOFT [Suspect]
     Active Substance: SERTRALINE HYDROCHLORIDE
     Indication: DEPRESSION
     Dosage: UNK
     Route: 064
  12. PENICILLINE [Concomitant]
     Active Substance: PENICILLIN
     Dosage: UNK
     Route: 064
     Dates: start: 20010213
  13. METROGEL CREAM [Concomitant]
     Dosage: UNK
     Route: 064

REACTIONS (36)
  - Gingivitis [Unknown]
  - Hypothyroidism [Recovering/Resolving]
  - Congenital anaemia [Unknown]
  - Renal tubular necrosis [Recovering/Resolving]
  - Respiratory distress [Recovered/Resolved]
  - Developmental delay [Unknown]
  - Gastrooesophageal reflux disease [Recovering/Resolving]
  - Electrolyte imbalance [Unknown]
  - Cytogenetic abnormality [Unknown]
  - Glucose tolerance impaired [Unknown]
  - Congenital anomaly [Unknown]
  - Strabismus [Unknown]
  - Hyperinsulinaemia [Unknown]
  - Foetal exposure during pregnancy [Unknown]
  - Fallot^s tetralogy [Recovered/Resolved]
  - Renal failure chronic [Recovering/Resolving]
  - Otitis media [Unknown]
  - Pyelonephritis [Unknown]
  - Asthma [Unknown]
  - Jaundice neonatal [Recovered/Resolved]
  - Pulmonary valve stenosis congenital [Unknown]
  - Transient tachypnoea of the newborn [Recovering/Resolving]
  - Single functional kidney [Unknown]
  - Mitral valve incompetence [Unknown]
  - Hypertension [Recovered/Resolved]
  - Hypoglycaemia [Unknown]
  - Glycosuria [Unknown]
  - Hypoplastic left heart syndrome [Unknown]
  - Cardiomegaly [Recovering/Resolving]
  - Foot deformity [Unknown]
  - Tricuspid valve incompetence [Unknown]
  - Urinary tract malformation [Unknown]
  - Sepsis [Unknown]
  - Toxicity to various agents [Unknown]
  - Atrial septal defect [Unknown]
  - Renal osteodystrophy [Unknown]

NARRATIVE: CASE EVENT DATE: 20010711
